FAERS Safety Report 5728991-7 (Version None)
Quarter: 2008Q2

REPORT INFORMATION
  Report Type: 
  Country: None (occurrence: None)
  Receive Date: 20080506
  Receipt Date: 20080428
  Transmission Date: 20081010
  Serious: Yes (Other)
  Sender: FDA-Public Use
  Company Number: DE-GILEAD-2008-0016156

PATIENT
  Sex: Male

DRUGS (3)
  1. HEPSERA [Suspect]
     Indication: HEPATITIS B VIRUS
     Route: 048
     Dates: start: 20030501
  2. ZEFFIX [Concomitant]
     Indication: HEPATITIS B VIRUS
     Route: 048
     Dates: start: 20080306
  3. ZEFFIX [Concomitant]
     Route: 048
     Dates: start: 20020101, end: 20030501

REACTIONS (1)
  - BLOOD LACTIC ACID INCREASED [None]
